FAERS Safety Report 12072806 (Version 1)
Quarter: 2016Q1

REPORT INFORMATION
  Report Type: Spontaneous
  Country: US (occurrence: None)
  Receive Date: 20160211
  Receipt Date: 20160211
  Transmission Date: 20160526
  Serious: No
  Sender: FDA-Public Use
  Company Number: None

PATIENT
  Age: 38 Year
  Sex: Female

DRUGS (1)
  1. EPOPROSTENOL. [Suspect]
     Active Substance: EPOPROSTENOL
     Indication: PULMONARY ARTERIAL HYPERTENSION
     Dosage: 33 NG/KG/MIN CONTINUOUS IV
     Route: 042
     Dates: start: 20150513

REACTIONS (3)
  - Pharyngitis streptococcal [None]
  - Flushing [None]
  - Headache [None]

NARRATIVE: CASE EVENT DATE: 20160125
